FAERS Safety Report 7178326-0 (Version None)
Quarter: 2010Q4

REPORT INFORMATION
  Report Type: 
  Country: None (occurrence: None)
  Receive Date: 20101220
  Receipt Date: 20101207
  Transmission Date: 20110411
  Serious: Yes (Hospitalization, Disabling, Other)
  Sender: FDA-Public Use
  Company Number: US-ELI_LILLY_AND_COMPANY-US201011006515

PATIENT
  Sex: Male

DRUGS (13)
  1. ZYPREXA [Suspect]
     Indication: SCHIZOPHRENIA
     Dosage: 30 MG, 3/D
     Dates: start: 20060101
  2. ZYPREXA [Suspect]
     Dosage: 15 MG, 2/D
     Dates: start: 20081001
  3. CYMBALTA [Suspect]
     Indication: HEADACHE
     Dosage: 60 MG, DAILY (1/D)
  4. CYMBALTA [Suspect]
     Dosage: UNK, UNK
  5. ZYPREXA [Suspect]
     Indication: SCHIZOPHRENIA
     Dosage: 15 MG, ONE TIME DOSE
     Route: 030
     Dates: start: 20070101, end: 20070101
  6. DEPAKOTE [Concomitant]
     Indication: SCHIZOPHRENIA
     Dosage: 250 MG, 2/D
  7. DEPAKOTE [Concomitant]
     Dosage: 1500 MG, DAILY (1/D)
  8. XANAX [Concomitant]
  9. KLONOPIN [Concomitant]
  10. NAPROSYN [Concomitant]
  11. NADOL [Concomitant]
  12. PHENERGAN [Concomitant]
     Indication: NAUSEA
  13. MARIJUANA [Concomitant]
     Indication: PAIN

REACTIONS (19)
  - AGGRESSION [None]
  - AGITATION [None]
  - AMNESIA [None]
  - ARTHRITIS [None]
  - BRAIN OPERATION [None]
  - CONVULSION [None]
  - DIPLOPIA [None]
  - DISABILITY [None]
  - FALL [None]
  - HEAD INJURY [None]
  - HEADACHE [None]
  - HEART RATE DECREASED [None]
  - HYPOAESTHESIA [None]
  - NERVOUS SYSTEM DISORDER [None]
  - OFF LABEL USE [None]
  - OVERDOSE [None]
  - PAIN IN EXTREMITY [None]
  - PHOTOPSIA [None]
  - VISION BLURRED [None]
